FAERS Safety Report 8990963 (Version 1)
Quarter: 2012Q4

REPORT INFORMATION
  Report Type: 
  Country: US (occurrence: US)
  Receive Date: 20121231
  Receipt Date: 20121231
  Transmission Date: 20130627
  Serious: Yes (Hospitalization)
  Sender: FDA-Public Use
  Company Number: US-ENDO PHARMACEUTICALS INC.-OPCR20122127

PATIENT
  Age: 59 Year
  Sex: Male

DRUGS (4)
  1. OPANA ER 40MG [Suspect]
     Indication: PAIN
     Route: 048
     Dates: start: 2012
  2. CONSTRAST [Suspect]
     Route: 065
     Dates: start: 201212, end: 201212
  3. DILAUDID [Concomitant]
     Indication: BREAKTHROUGH PAIN
     Dosage: UNK
     Route: 065
  4. OPANA ER 40MG [Concomitant]
     Indication: PAIN
     Route: 048
     Dates: end: 2012

REACTIONS (3)
  - Renal disorder [Not Recovered/Not Resolved]
  - Pneumonia [Recovering/Resolving]
  - Hypertension [Not Recovered/Not Resolved]
